FAERS Safety Report 23679459 (Version 1)
Quarter: 2024Q1

REPORT INFORMATION
  Report Type: Other
  Country: CN (occurrence: CN)
  Receive Date: 20240327
  Receipt Date: 20240327
  Transmission Date: 20240409
  Serious: Yes (Hospitalization)
  Sender: FDA-Public Use
  Company Number: CN-GE HEALTHCARE-2024CSU002636

PATIENT
  Age: 54 Year
  Sex: Male
  Weight: 74.3 kg

DRUGS (3)
  1. OMNIPAQUE [Suspect]
     Active Substance: IOHEXOL
     Indication: Angiocardiogram
     Dosage: 170 ML, TOTAL
     Route: 042
     Dates: start: 20240222, end: 20240222
  2. OMNIPAQUE [Suspect]
     Active Substance: IOHEXOL
     Indication: Ultrasound Doppler
  3. OMNIPAQUE [Suspect]
     Active Substance: IOHEXOL
     Indication: Percutaneous coronary intervention

REACTIONS (3)
  - Cognitive disorder [Recovered/Resolved]
  - Contrast encephalopathy [Recovered/Resolved]
  - Amnesia [Recovered/Resolved]

NARRATIVE: CASE EVENT DATE: 20240222
